FAERS Safety Report 15526959 (Version 2)
Quarter: 2018Q4

REPORT INFORMATION
  Report Type: Spontaneous
  Country: US (occurrence: US)
  Receive Date: 20181018
  Receipt Date: 20181018
  Transmission Date: 20190205
  Serious: Yes (Hospitalization, Other)
  Sender: FDA-Public Use
  Company Number: US-SA-2018SA286461

PATIENT
  Sex: Female

DRUGS (1)
  1. LEMTRADA [Suspect]
     Active Substance: ALEMTUZUMAB
     Dosage: UNK
     Route: 041
     Dates: end: 20180406

REACTIONS (3)
  - Thrombocytopenia [Unknown]
  - Platelet count decreased [Unknown]
  - Mucosa vesicle [Unknown]

NARRATIVE: CASE EVENT DATE: 2018
